FAERS Safety Report 10897212 (Version 1)
Quarter: 2015Q1

REPORT INFORMATION
  Report Type: Spontaneous
  Country: None (occurrence: None)
  Receive Date: 20150302
  Receipt Date: 20150302
  Transmission Date: 20150721
  Serious: Yes (Disabling)
  Sender: FDA-Public Use
  Company Number: None

PATIENT
  Age: 34 Year
  Sex: Female
  Weight: 65.77 kg

DRUGS (1)
  1. DULCOGAS [Suspect]
     Active Substance: DIMETHICONE
     Indication: FLATULENCE
     Dates: start: 20150301, end: 20150301

REACTIONS (10)
  - Drug ineffective [None]
  - Vomiting [None]
  - Gastrooesophageal reflux disease [None]
  - Malaise [None]
  - Chills [None]
  - Flatulence [None]
  - Condition aggravated [None]
  - Dyspepsia [None]
  - Dizziness [None]
  - Nausea [None]

NARRATIVE: CASE EVENT DATE: 20150301
